FAERS Safety Report 9094914 (Version 1)
Quarter: 2013Q1

REPORT INFORMATION
  Report Type: Spontaneous
  Country: US (occurrence: None)
  Receive Date: 20130123
  Receipt Date: 20130123
  Transmission Date: 20140127
  Serious: Yes (Other)
  Sender: FDA-Public Use
  Company Number: AUR-APL-2013-00830

PATIENT
  Age: 63 Year
  Sex: Female

DRUGS (8)
  1. SIMVASTATIN (SIMVASTATIN) [Suspect]
     Indication: BLOOD CHOLESTEROL INCREASED
  2. RELPAX (ELETRIPTAN HYDROBROMIDE) [Suspect]
     Indication: MIGRAINE
     Route: 048
     Dates: start: 201301
  3. ADVIL (IBUPROFEN) [Suspect]
     Indication: PRODUCT USED FOR UNKNOWN INDICATION
  4. PROPRANOLOL HYDROCHLORIDE [Suspect]
     Indication: BLOOD PRESSURE INCREASED
     Dosage: 40 MG (20 MG, 2 IN 1 D)
  5. HYDROCHLOROTHIAZIDE W/TRIAMTERENE (DYAZIDE) [Suspect]
     Dosage: 37.5 MG/25 MG (1 D)
  6. LORAZEPAM (LORAZEPAM) [Suspect]
     Indication: MENIERE^S DISEASE
     Dosage: 1 MG (0.5 MG, 2 IN 1 D)
  7. ARIMIDEX (ANASTROZOLE) [Suspect]
     Indication: BREAST CANCER
  8. ALBUTEROL (SALBUTAMOL) [Suspect]
     Indication: ASTHMA
     Dosage: ONE PUFF (AS REQUIRED)

REACTIONS (3)
  - Blood pressure increased [None]
  - Weight increased [None]
  - Drug ineffective [None]
